FAERS Safety Report 5015003-6 (Version None)
Quarter: 2006Q2

REPORT INFORMATION
  Report Type: 
  Country: None (occurrence: None)
  Receive Date: 20060425
  Receipt Date: 20050413
  Transmission Date: 20061013
  Serious: Yes (Other)
  Sender: FDA-Public Use
  Company Number: WAES 0504USA01939

PATIENT
  Sex: Male

DRUGS (1)
  1. SINGULAIR [Suspect]

REACTIONS (2)
  - CONVULSION [None]
  - PYREXIA [None]
